FAERS Safety Report 17656625 (Version 1)
Quarter: 2020Q2

REPORT INFORMATION
  Report Type: Spontaneous
  Country: US (occurrence: US)
  Receive Date: 20200410
  Receipt Date: 20200410
  Transmission Date: 20200713
  Serious: Yes (Other)
  Sender: FDA-Public Use
  Company Number: None

PATIENT
  Age: 44 Year
  Sex: Male
  Weight: 83 kg

DRUGS (4)
  1. AZITHROMYCIN ANHYDROUS. [Suspect]
     Active Substance: AZITHROMYCIN ANHYDROUS
     Indication: CORONAVIRUS TEST POSITIVE
     Route: 042
     Dates: start: 20200331, end: 20200404
  2. HYDROXYCHLOROQUINE 200 MG [Concomitant]
     Active Substance: HYDROXYCHLOROQUINE
     Dates: start: 20200402, end: 20200406
  3. AZITHROMYCIN ANHYDROUS. [Suspect]
     Active Substance: AZITHROMYCIN ANHYDROUS
     Indication: PNEUMONIA
     Route: 042
     Dates: start: 20200331, end: 20200404
  4. HYDROXYCHLOROQUINE 400 MG [Concomitant]
     Dates: start: 20200401, end: 20200402

REACTIONS (3)
  - Coronavirus test positive [None]
  - Sinus tachycardia [None]
  - Electrocardiogram abnormal [None]

NARRATIVE: CASE EVENT DATE: 20200405
